FAERS Safety Report 9732874 (Version 2)
Quarter: 2013Q4

REPORT INFORMATION
  Report Type: Spontaneous
  Country: US (occurrence: US)
  Receive Date: 20131204
  Receipt Date: 20131204
  Transmission Date: 20140711
  Serious: No
  Sender: FDA-Public Use
  Company Number: US-GILEAD-2009-0021421

PATIENT
  Age: 75 Year
  Sex: Male

DRUGS (13)
  1. LETAIRIS [Suspect]
     Indication: PULMONARY ARTERIAL HYPERTENSION
     Route: 048
     Dates: start: 20080417
  2. REVATIO [Concomitant]
  3. OXYGEN [Concomitant]
  4. ASPIRIN [Concomitant]
  5. SYMBICORT [Concomitant]
  6. SPIRIVA [Concomitant]
  7. XOPENEX [Concomitant]
  8. VERAMYST [Concomitant]
  9. DUONEB [Concomitant]
  10. LIPITOR [Concomitant]
  11. NEXIUM [Concomitant]
  12. CALCIUM [Concomitant]
  13. MIRAPEX [Concomitant]

REACTIONS (2)
  - Local swelling [Unknown]
  - Cellulitis [Unknown]
